FAERS Safety Report 16348838 (Version 1)
Quarter: 2019Q2

REPORT INFORMATION
  Report Type: Spontaneous
  Country: DE (occurrence: DE)
  Receive Date: 20190523
  Receipt Date: 20190523
  Transmission Date: 20190711
  Serious: Yes (Death, Congenital Anomaly, Other)
  Sender: FDA-Public Use
  Company Number: DE-MYLANLABS-2019M1047787

PATIENT
  Sex: Female
  Weight: 2.2 kg

DRUGS (2)
  1. BISOPROLOL [Suspect]
     Active Substance: BISOPROLOL
     Indication: PRODUCT USED FOR UNKNOWN INDICATION
     Dosage: 2X8 MG UNK
     Route: 064
  2. CANDESARTAN. [Suspect]
     Active Substance: CANDESARTAN
     Indication: PRODUCT USED FOR UNKNOWN INDICATION
     Dosage: 2X8 MG UNK
     Route: 064

REACTIONS (5)
  - Anuria [Unknown]
  - Foetal exposure during pregnancy [Recovered/Resolved]
  - Coagulopathy [Fatal]
  - Acidosis [Fatal]
  - Foetal malformation [Unknown]
